FAERS Safety Report 20088049 (Version 1)
Quarter: 2021Q4

REPORT INFORMATION
  Report Type: Report from Study
  Country: US (occurrence: US)
  Receive Date: 20211118
  Receipt Date: 20211118
  Transmission Date: 20220303
  Serious: Yes (Hospitalization, Other)
  Sender: FDA-Public Use
  Company Number: US-GILEAD-2021-0553926

PATIENT
  Age: 67 Year
  Sex: Male

DRUGS (2)
  1. IDELALISIB [Suspect]
     Active Substance: IDELALISIB
     Indication: Follicular lymphoma
     Dosage: 150 MG, BID
     Route: 048
     Dates: start: 20210722
  2. IDELALISIB [Suspect]
     Active Substance: IDELALISIB
     Indication: Pleural effusion
     Dosage: 150 MG
     Route: 048
     Dates: start: 202107, end: 20211020

REACTIONS (2)
  - Toxicity to various agents [Unknown]
  - Pneumonia [Recovered/Resolved]

NARRATIVE: CASE EVENT DATE: 20211030
